FAERS Safety Report 6093978-4 (Version None)
Quarter: 2009Q1

REPORT INFORMATION
  Report Type: 
  Country: None (occurrence: None)
  Receive Date: 20090226
  Receipt Date: 20090218
  Transmission Date: 20090719
  Serious: Yes (Other)
  Sender: FDA-Public Use
  Company Number: B0376983A

PATIENT
  Age: 31 Year
  Sex: Female

DRUGS (7)
  1. PAROXETINE HCL [Suspect]
     Route: 065
     Dates: start: 20000706
  2. PROZAC [Concomitant]
     Dates: start: 20030514
  3. DIAZEPAM [Concomitant]
     Dates: start: 20030515
  4. LORAZEPAM [Concomitant]
     Dates: start: 20030531
  5. CIPRALEX [Concomitant]
     Dates: start: 20030531
  6. CLOMIPRAMINE [Concomitant]
     Dates: start: 20030609
  7. EFFEXOR [Concomitant]
     Dates: start: 20030616

REACTIONS (6)
  - ANXIETY [None]
  - DEPRESSION [None]
  - DRUG WITHDRAWAL SYNDROME [None]
  - NAUSEA [None]
  - PANIC ATTACK [None]
  - SUICIDAL IDEATION [None]
